FAERS Safety Report 25876482 (Version 1)
Quarter: 2025Q4

REPORT INFORMATION
  Report Type: Report from Study
  Country: EU (occurrence: EU)
  Receive Date: 20251003
  Receipt Date: 20251003
  Transmission Date: 20260118
  Serious: Yes (Other)
  Sender: MALLINCKRODT
  Company Number: EU-MALLINCKRODT-MNK202506048

PATIENT
  Age: 16 Year
  Sex: Male

DRUGS (10)
  1. UVADEX [Suspect]
     Active Substance: METHOXSALEN
     Indication: Acute graft versus host disease in skin
     Dosage: UNKNOWN (TWO PROCEDURES EVERY TWO WEEKS)
     Route: 050
  2. UVADEX [Suspect]
     Active Substance: METHOXSALEN
     Indication: Graft versus host disease in gastrointestinal tract
  3. RUXOLITINIB [Suspect]
     Active Substance: RUXOLITINIB
     Indication: Acute graft versus host disease in skin
  4. RUXOLITINIB [Suspect]
     Active Substance: RUXOLITINIB
     Indication: Graft versus host disease in gastrointestinal tract
  5. CYCLOSPORINE [Suspect]
     Active Substance: CYCLOSPORINE
     Indication: Graft versus host disease in skin
     Dosage: UNKNOWN
  6. CYCLOSPORINE [Suspect]
     Active Substance: CYCLOSPORINE
     Indication: Graft versus host disease in gastrointestinal tract
  7. PREDNISONE [Concomitant]
     Active Substance: PREDNISONE
     Dosage: UNKNOWN
  8. PREDNISONE [Concomitant]
     Active Substance: PREDNISONE
  9. SIROLIMUS [Concomitant]
     Active Substance: SIROLIMUS
     Dosage: UNKNOWN (STOPPED AFTER 2 YEARS)
  10. SIROLIMUS [Concomitant]
     Active Substance: SIROLIMUS

REACTIONS (8)
  - Graft versus host disease [Recovered/Resolved]
  - Disease progression [Recovered/Resolved]
  - Cytomegalovirus infection reactivation [Unknown]
  - Thrombocytopenia [Unknown]
  - Cytokine release syndrome [Unknown]
  - Mobility decreased [Unknown]
  - Chest discomfort [Unknown]
  - Peripheral swelling [Unknown]
